FAERS Safety Report 24259472 (Version 1)
Quarter: 2024Q3

REPORT INFORMATION
  Report Type: Spontaneous
  Country: US (occurrence: US)
  Receive Date: 20240828
  Receipt Date: 20240828
  Transmission Date: 20241016
  Serious: No
  Sender: UNITED EXCHANGE
  Company Number: US-United Exchange Corporation-2160952

PATIENT
  Age: 61 Year
  Sex: Male

DRUGS (5)
  1. CORALITE MEDICATED HEAT [Suspect]
     Active Substance: CAPSAICIN
     Indication: Back pain
     Route: 061
     Dates: start: 20240524, end: 20240526
  2. CORALITE MEDICATED HEAT [Suspect]
     Active Substance: CAPSAICIN
     Indication: Contusion
  3. CORALITE MEDICATED HEAT [Suspect]
     Active Substance: CAPSAICIN
     Indication: Ligament sprain
  4. CORALITE MEDICATED HEAT [Suspect]
     Active Substance: CAPSAICIN
     Indication: Muscle strain
  5. CORALITE MEDICATED HEAT [Suspect]
     Active Substance: CAPSAICIN
     Indication: Arthritis

REACTIONS (1)
  - Rash [Recovering/Resolving]

NARRATIVE: CASE EVENT DATE: 20240524
